FAERS Safety Report 8493280-7 (Version None)
Quarter: 2012Q3

REPORT INFORMATION
  Report Type: 
  Country: None (occurrence: None)
  Receive Date: 20120706
  Receipt Date: 20120629
  Transmission Date: 20120928
  Serious: Yes (Death, Other)
  Sender: FDA-Public Use
  Company Number: DE-MILLENNIUM PHARMACEUTICALS, INC.-2011-05453

PATIENT

DRUGS (6)
  1. THALIDOMIDE [Suspect]
     Indication: MYELODYSPLASTIC SYNDROME
  2. THALIDOMIDE [Suspect]
     Indication: MULTIPLE MYELOMA
  3. INTERFERON [Suspect]
     Indication: MYELODYSPLASTIC SYNDROME
  4. INTERFERON [Suspect]
     Indication: MULTIPLE MYELOMA
  5. VELCADE [Suspect]
     Indication: MULTIPLE MYELOMA
  6. VELCADE [Suspect]
     Indication: MYELODYSPLASTIC SYNDROME

REACTIONS (3)
  - MYELODYSPLASTIC SYNDROME [None]
  - PNEUMONIA [None]
  - NEOPLASM MALIGNANT [None]
